FAERS Safety Report 6074064-6 (Version None)
Quarter: 2009Q1

REPORT INFORMATION
  Report Type: 
  Country: None (occurrence: None)
  Receive Date: 20090211
  Receipt Date: 20090206
  Transmission Date: 20090719
  Serious: Yes (Other)
  Sender: FDA-Public Use
  Company Number: A0749598A

PATIENT
  Age: 5 Year
  Sex: Male

DRUGS (2)
  1. LAMICTAL [Suspect]
     Route: 048
     Dates: start: 20080401, end: 20090205
  2. VITAMIN [Concomitant]

REACTIONS (8)
  - AGGRESSION [None]
  - AGITATION [None]
  - CONVULSION [None]
  - DRUG LEVEL DECREASED [None]
  - FEELING ABNORMAL [None]
  - GRAND MAL CONVULSION [None]
  - PSYCHOMOTOR HYPERACTIVITY [None]
  - RASH [None]
